FAERS Safety Report 26216708 (Version 1)
Quarter: 2025Q4

REPORT INFORMATION
  Report Type: Spontaneous
  Country: CA (occurrence: CA)
  Receive Date: 20251231
  Receipt Date: 20251231
  Transmission Date: 20260118
  Serious: Yes (Life-Threatening, Hospitalization)
  Sender: TEVA
  Company Number: CA-TEVA-VS-3407724

PATIENT
  Age: 10 Year
  Sex: Female

DRUGS (10)
  1. METHYLPREDNISOLONE [Suspect]
     Active Substance: METHYLPREDNISOLONE
     Indication: Acute myeloid leukaemia
     Route: 065
  2. TYLENOL [Suspect]
     Active Substance: ACETAMINOPHEN
     Indication: Acute myeloid leukaemia
     Dosage: DOSE FORM :NOT SPECIFIED
     Route: 065
  3. ONDANSETRON [Suspect]
     Active Substance: ONDANSETRON
     Indication: Acute myeloid leukaemia
     Dosage: DOSE FORM : NOT SPECIFIED
     Route: 065
  4. ONDANSETRON [Suspect]
     Active Substance: ONDANSETRON
     Indication: Acute myeloid leukaemia
     Route: 065
  5. ONDANSETRON [Suspect]
     Active Substance: ONDANSETRON
     Indication: Acute myeloid leukaemia
     Route: 065
  6. QUETIAPINE FUMARATE [Suspect]
     Active Substance: QUETIAPINE FUMARATE
     Indication: Allogenic stem cell transplantation
     Route: 065
  7. CASPOFUNGIN ACETATE [Concomitant]
     Active Substance: CASPOFUNGIN ACETATE
     Indication: Product used for unknown indication
     Dosage: ROUTE OF ADMINISTRATION :INTRAVENOUS DRIP
     Route: 065
  8. URSODIOL [Suspect]
     Active Substance: URSODIOL
     Indication: Acute myeloid leukaemia
     Dosage: DOSE FORM : NOT SPECIFIED
     Route: 065
  9. PANTOPRAZOLE SODIUM [Suspect]
     Active Substance: PANTOPRAZOLE SODIUM
     Indication: Chronic graft versus host disease
     Dosage: DOSE FORM :TABLET (DELAYED-RELEASE)
     Route: 065
  10. FLOVENT [Suspect]
     Active Substance: FLUTICASONE PROPIONATE
     Indication: Acute myeloid leukaemia
     Dosage: DOSE FORM :NOT SPECIFIED
     Route: 065

REACTIONS (4)
  - Graft versus host disease in liver [Unknown]
  - Activated partial thromboplastin time prolonged [Unknown]
  - Drug ineffective [Unknown]
  - Graft versus host disease in lung [Unknown]
